FAERS Safety Report 15651384 (Version 11)
Quarter: 2019Q2

REPORT INFORMATION
  Report Type: Spontaneous
  Country: JP (occurrence: JP)
  Receive Date: 20181123
  Receipt Date: 20190627
  Transmission Date: 20190711
  Serious: Yes (Hospitalization, Other)
  Sender: FDA-Public Use
  Company Number: JP-AMGEN-JPNSP2018167881

PATIENT
  Age: 68 Year
  Sex: Male
  Weight: 65.2 kg

DRUGS (15)
  1. WARFARIN [Concomitant]
     Active Substance: WARFARIN
     Indication: ATRIAL FIBRILLATION
     Dosage: 6.5 MILLIGRAM
     Route: 048
     Dates: start: 20180405, end: 20180704
  2. WARFARIN [Concomitant]
     Active Substance: WARFARIN
     Dosage: 6.25 MILLIGRAM
     Route: 048
     Dates: start: 20180705, end: 20181204
  3. LOTRIGA [Concomitant]
     Active Substance: OMEGA-3-ACID ETHYL ESTERS
     Indication: DYSLIPIDAEMIA
     Dosage: 2 GRAM
     Route: 048
  4. CALTAN [Concomitant]
     Active Substance: CALCIUM CARBONATE
     Dosage: UNK
     Route: 065
     Dates: start: 20180618
  5. PLETAAL [Concomitant]
     Active Substance: CILOSTAZOL
     Indication: PERIPHERAL ARTERIAL OCCLUSIVE DISEASE
  6. PARSABIV [Suspect]
     Active Substance: ETELCALCETIDE HYDROCHLORIDE
     Dosage: 2.5 MILLIGRAM, 3 TIMES/WK
     Route: 010
     Dates: start: 20180620
  7. ALFAROL [Suspect]
     Active Substance: ALFACALCIDOL
     Indication: PRODUCT USED FOR UNKNOWN INDICATION
     Dosage: 0.5 MICROGRAM, ONCE AFTER BREAKFAST
     Route: 048
     Dates: start: 20180208, end: 20180615
  8. ALFAROL [Suspect]
     Active Substance: ALFACALCIDOL
     Dosage: 0.25 MICROGRAM, ONCE AFTER BREAKFAST
     Route: 048
     Dates: start: 20180616, end: 20181207
  9. EQUA [Concomitant]
     Active Substance: VILDAGLIPTIN
     Indication: TYPE 2 DIABETES MELLITUS
     Dosage: 50 MILLIGRAM
     Route: 048
  10. WARFARIN [Concomitant]
     Active Substance: WARFARIN
     Dosage: 6 MILLIGRAM
     Route: 048
     Dates: start: 20181205
  11. ALFAROL [Suspect]
     Active Substance: ALFACALCIDOL
     Dosage: 0.5 MICROGRAM, ONCE AFTER BREAKFAST
     Route: 048
     Dates: start: 20181208
  12. RIONA [Concomitant]
     Active Substance: FERRIC CITRATE ANHYDROUS
     Dosage: 1500 MILLIGRAM, QD
     Route: 065
  13. NEXIUM [Concomitant]
     Active Substance: ESOMEPRAZOLE MAGNESIUM
     Indication: GASTROOESOPHAGEAL REFLUX DISEASE
     Dosage: 20 MILLIGRAM
     Route: 048
  14. PLETAAL [Concomitant]
     Active Substance: CILOSTAZOL
     Indication: PERIPHERAL ARTERIAL OCCLUSIVE DISEASE
     Dosage: 200 MILLIGRAM, QD
     Route: 048
     Dates: start: 20181106
  15. PARSABIV [Suspect]
     Active Substance: ETELCALCETIDE HYDROCHLORIDE
     Indication: HYPERPARATHYROIDISM SECONDARY
     Dosage: 5 MILLIGRAM, 3 TIMES/WK
     Route: 010
     Dates: start: 20180507, end: 20180618

REACTIONS (8)
  - Peripheral arterial occlusive disease [Recovering/Resolving]
  - Shunt stenosis [Recovering/Resolving]
  - Gangrene [Not Recovered/Not Resolved]
  - Infection [Not Recovered/Not Resolved]
  - Peripheral arterial occlusive disease [Not Recovered/Not Resolved]
  - Shunt stenosis [Recovered/Resolved]
  - Shunt stenosis [Recovered/Resolved]
  - Vascular insufficiency [Not Recovered/Not Resolved]

NARRATIVE: CASE EVENT DATE: 20180619
